FAERS Safety Report 17466407 (Version 1)
Quarter: 2020Q1

REPORT INFORMATION
  Report Type: Report from Study
  Country: CO (occurrence: CO)
  Receive Date: 20200227
  Receipt Date: 20200227
  Transmission Date: 20200409
  Serious: Yes (Hospitalization, Other)
  Sender: FDA-Public Use
  Company Number: CO-ROCHE-2440650

PATIENT
  Sex: Male

DRUGS (2)
  1. TOCILIZUMAB. [Suspect]
     Active Substance: TOCILIZUMAB
     Indication: PRODUCT USED FOR UNKNOWN INDICATION
     Route: 065
  2. BUSCAPINA [Concomitant]

REACTIONS (11)
  - Nephrolithiasis [Unknown]
  - Pneumonia [Unknown]
  - Blood pressure decreased [Unknown]
  - Arthralgia [Unknown]
  - Influenza [Unknown]
  - Pain [Unknown]
  - Immunodeficiency [Unknown]
  - Feeling abnormal [Unknown]
  - Renal colic [Unknown]
  - Gastric disorder [Unknown]
  - Muscle spasms [Unknown]
